FAERS Safety Report 10062400 (Version 4)
Quarter: 2014Q3

REPORT INFORMATION
  Report Type: Spontaneous
  Country: US (occurrence: US)
  Receive Date: 20140407
  Receipt Date: 20140826
  Transmission Date: 20150326
  Serious: Yes (Other)
  Sender: FDA-Public Use
  Company Number: US-PFIZER INC-2014095334

PATIENT
  Age: 57 Year
  Sex: Female
  Weight: 89 kg

DRUGS (21)
  1. CONCERTA [Concomitant]
     Active Substance: METHYLPHENIDATE HYDROCHLORIDE
     Dosage: 54 MG, UNK
  2. COLLAGEN [Concomitant]
     Active Substance: COLLAGEN
     Dosage: UNK
  3. ULTRAM [Concomitant]
     Active Substance: TRAMADOL HYDROCHLORIDE
     Dosage: 50 MG, UNK
  4. FISH OIL [Concomitant]
     Active Substance: FISH OIL
     Dosage: UNK
  5. MULTIVITAMINS [Concomitant]
     Active Substance: VITAMINS
  6. COENZYME Q10 [Concomitant]
     Active Substance: UBIDECARENONE
     Dosage: 30 MG, UNK
  7. HYDROMORPHONE [Concomitant]
     Active Substance: HYDROMORPHONE
     Dosage: 4 MG, UNK
  8. RESTASIS [Concomitant]
     Active Substance: CYCLOSPORINE
     Dosage: 0.05 %, UNK
  9. XELJANZ [Suspect]
     Active Substance: TOFACITINIB CITRATE
     Indication: RHEUMATOID ARTHRITIS
     Dosage: 5 MG, 2X/DAY
     Route: 048
     Dates: start: 20140114, end: 20140330
  10. GARLIC. [Concomitant]
     Active Substance: GARLIC
     Dosage: 10 MG, UNK
  11. CYCLOBENZAPRINE [Concomitant]
     Active Substance: CYCLOBENZAPRINE
     Dosage: 5 MG, UNK
  12. MOBIC [Concomitant]
     Active Substance: MELOXICAM
     Dosage: 7.5 MG, UNK
  13. PREDNISONE. [Concomitant]
     Active Substance: PREDNISONE
     Dosage: 1 MG, UNK
  14. MELOXICAM. [Concomitant]
     Active Substance: MELOXICAM
     Dosage: 7.5 MG, UNK
  15. CINNAMON. [Concomitant]
     Active Substance: CINNAMON
     Dosage: UNK
  16. CHONDROITIN [Concomitant]
     Active Substance: CHONDROITIN SULFATE (CHICKEN)
     Dosage: 250 MG, UNK
  17. OMEPRAZOLE. [Concomitant]
     Active Substance: OMEPRAZOLE
     Dosage: 20 MG, UNK
  18. ALLEGRA [Concomitant]
     Active Substance: FEXOFENADINE HYDROCHLORIDE
     Dosage: 60 MG, UNK
  19. INOSITOL [Concomitant]
     Active Substance: INOSITOL
     Dosage: 500 MG, UNK
  20. OREGANO CAP OIL [Concomitant]
     Dosage: UNK
  21. OSTEO BI-FLEX [Concomitant]
     Active Substance: CHONDROITIN SULFATE A\GLUCOSAMINE
     Dosage: UNK

REACTIONS (9)
  - Muscle rupture [Not Recovered/Not Resolved]
  - Oropharyngeal pain [Recovered/Resolved]
  - Tendon rupture [Not Recovered/Not Resolved]
  - Swelling [Unknown]
  - Breast mass [Unknown]
  - Rhinorrhoea [Recovered/Resolved]
  - Foreign body [Unknown]
  - Lymphadenopathy [Unknown]
  - Local swelling [Unknown]

NARRATIVE: CASE EVENT DATE: 20140328
